FAERS Safety Report 26078393 (Version 1)
Quarter: 2025Q4

REPORT INFORMATION
  Report Type: Spontaneous
  Country: US (occurrence: US)
  Receive Date: 20251122
  Receipt Date: 20251122
  Transmission Date: 20260118
  Serious: No
  Sender: SANOFI AVENTIS
  Company Number: US-SA-2025SA348859

PATIENT
  Age: 26 Year
  Sex: Female

DRUGS (2)
  1. DUPIXENT [Suspect]
     Active Substance: DUPILUMAB
     Indication: Eosinophilic oesophagitis
     Dosage: 300 MG, QOW
     Route: 058
     Dates: start: 20251031
  2. XANAX [Concomitant]
     Active Substance: ALPRAZOLAM
     Dosage: UNK

REACTIONS (2)
  - Eosinophilic oesophagitis [Unknown]
  - Dysphagia [Unknown]

NARRATIVE: CASE EVENT DATE: 20251117
